FAERS Safety Report 11175795 (Version 1)
Quarter: 2015Q2

REPORT INFORMATION
  Report Type: Spontaneous
  Country: US (occurrence: US)
  Receive Date: 20150609
  Receipt Date: 20150609
  Transmission Date: 20150821
  Serious: No
  Sender: FDA-Public Use
  Company Number: US-PFIZER INC-2015189809

PATIENT
  Age: 57 Year
  Sex: Female
  Weight: 79 kg

DRUGS (11)
  1. LYRICA [Suspect]
     Active Substance: PREGABALIN
     Indication: NERVE INJURY
  2. CHOLEST-OFF [Concomitant]
     Indication: BLOOD CHOLESTEROL
     Dosage: 2 DF, 2X/DAY
  3. FISH OIL [Concomitant]
     Active Substance: FISH OIL
  4. BALANCED B [Concomitant]
     Dosage: UNK UNK, 1X/DAY
  5. LYRICA [Suspect]
     Active Substance: PREGABALIN
     Indication: DIABETIC NEUROPATHY
     Dosage: 75 MG, 1X/DAY
     Route: 048
     Dates: start: 201010
  6. ZOCOR [Suspect]
     Active Substance: SIMVASTATIN
     Indication: BLOOD CHOLESTEROL
     Dosage: UNK
  7. VITAMIN D3 [Concomitant]
     Active Substance: CHOLECALCIFEROL
     Indication: OSTEOPENIA
     Dosage: 2000 IU, 1X/DAY
  8. METFORMIN [Concomitant]
     Active Substance: METFORMIN HYDROCHLORIDE
     Dosage: 1000 MG, 1X/DAY
     Route: 048
  9. CINNAMON PLUS CHROMIUM [Concomitant]
     Dosage: 2000 MG, 2X/DAY
  10. SIMVASTATIN. [Suspect]
     Active Substance: SIMVASTATIN
     Indication: BLOOD CHOLESTEROL
     Dosage: UNK
  11. VITAMIN D3 [Concomitant]
     Active Substance: CHOLECALCIFEROL
     Indication: MENOPAUSE

REACTIONS (4)
  - Myalgia [Recovered/Resolved]
  - Pain [Unknown]
  - Bone pain [Not Recovered/Not Resolved]
  - Muscle spasms [Recovered/Resolved]
